FAERS Safety Report 25566231 (Version 3)
Quarter: 2025Q3

REPORT INFORMATION
  Report Type: Spontaneous
  Country: CR (occurrence: CR)
  Receive Date: 20250716
  Receipt Date: 20250925
  Transmission Date: 20251020
  Serious: Yes (Other)
  Sender: SANDOZ
  Company Number: CR-002147023-NVSC2023CR188657

PATIENT
  Age: 35 Year
  Sex: Female

DRUGS (13)
  1. METHOTREXATE [Suspect]
     Active Substance: METHOTREXATE
     Dosage: 25 MG, QW (INJECTED)
     Route: 065
     Dates: start: 2020
  2. METHOTREXATE [Suspect]
     Active Substance: METHOTREXATE
     Indication: Psoriatic arthropathy
     Dosage: 6 OF 2.5 MG, QW
     Route: 065
     Dates: start: 2020
  3. METHOTREXATE [Suspect]
     Active Substance: METHOTREXATE
     Dosage: 8 OF 2.5 MG, QW
     Route: 065
  4. METHOTREXATE [Suspect]
     Active Substance: METHOTREXATE
     Indication: Psoriatic arthropathy
     Route: 065
  5. PREDNISOLONE [Suspect]
     Active Substance: PREDNISOLONE
     Indication: Product used for unknown indication
     Route: 065
  6. SECUKINUMAB [Suspect]
     Active Substance: SECUKINUMAB
     Indication: Psoriatic arthropathy
     Dosage: 150 MG, QMO
     Route: 058
     Dates: start: 20230719
  7. SECUKINUMAB [Suspect]
     Active Substance: SECUKINUMAB
     Dosage: 150 MG, QMO
     Route: 058
     Dates: start: 202309
  8. SULFASALAZINE DELAYED-RELEASE [Suspect]
     Active Substance: SULFASALAZINE
     Indication: Product used for unknown indication
     Route: 065
  9. INDOMETHACIN [Concomitant]
     Active Substance: INDOMETHACIN
     Indication: Product used for unknown indication
     Dosage: 2 DOSAGE FORM, QD
     Route: 065
  10. PREDNISOLONE [Concomitant]
     Active Substance: PREDNISOLONE
     Route: 048
  11. PREDNISOLONE [Concomitant]
     Active Substance: PREDNISOLONE
     Route: 048
  12. PREDNISOLONE [Concomitant]
     Active Substance: PREDNISOLONE
     Indication: Psoriatic arthropathy
     Route: 065
  13. SULFASALAZINE [Concomitant]
     Active Substance: SULFASALAZINE
     Indication: Product used for unknown indication
     Dosage: 6 DOSAGE FORM, QD, TABLET
     Route: 065

REACTIONS (12)
  - Psoriatic arthropathy [Not Recovered/Not Resolved]
  - Gait disturbance [Unknown]
  - Movement disorder [Unknown]
  - Discomfort [Unknown]
  - Malaise [Not Recovered/Not Resolved]
  - Arthralgia [Not Recovered/Not Resolved]
  - Fear [Not Recovered/Not Resolved]
  - Application site pain [Unknown]
  - Injection site haemorrhage [Not Recovered/Not Resolved]
  - Drug ineffective [Not Recovered/Not Resolved]
  - Needle issue [Not Recovered/Not Resolved]
  - Device use error [Not Recovered/Not Resolved]

NARRATIVE: CASE EVENT DATE: 20250501
